FAERS Safety Report 8969848 (Version 1)
Quarter: 2012Q4

REPORT INFORMATION
  Report Type: 
  Country: US (occurrence: US)
  Receive Date: 20121218
  Receipt Date: 20121218
  Transmission Date: 20130627
  Serious: No
  Sender: FDA-Public Use
  Company Number: US-BRISTOL-MYERS SQUIBB COMPANY-16540064

PATIENT
  Age: 42 Year
  Sex: Female

DRUGS (3)
  1. ABILIFY [Suspect]
     Indication: BIPOLAR I DISORDER
     Dosage: then 10 mg
  2. AMBIEN [Concomitant]
  3. LAMICTAL [Concomitant]

REACTIONS (4)
  - Vision blurred [Unknown]
  - Akathisia [Unknown]
  - Headache [Unknown]
  - Abdominal discomfort [Unknown]
